FAERS Safety Report 13085739 (Version 8)
Quarter: 2018Q2

REPORT INFORMATION
  Report Type: Spontaneous
  Country: IN (occurrence: IN)
  Receive Date: 20170104
  Receipt Date: 20180627
  Transmission Date: 20180711
  Serious: Yes (Other)
  Sender: FDA-Public Use
  Company Number: PHHY2016IN180690

PATIENT
  Age: 61 Year
  Sex: Male

DRUGS (1)
  1. DICLOFENAC SODIUM. [Suspect]
     Active Substance: DICLOFENAC SODIUM
     Indication: DIABETIC RETINAL OEDEMA
     Dosage: 450 ?G (SYSTEMIC PREPARATION)
     Route: 031
     Dates: start: 20150314

REACTIONS (4)
  - Macular fibrosis [Recovered/Resolved]
  - Retinal toxicity [Recovered/Resolved]
  - Retinal degeneration [Recovering/Resolving]
  - Product use in unapproved indication [Unknown]

NARRATIVE: CASE EVENT DATE: 20150315
